FAERS Safety Report 25792912 (Version 1)
Quarter: 2025Q3

REPORT INFORMATION
  Report Type: Spontaneous
  Country: IN (occurrence: IN)
  Receive Date: 20250911
  Receipt Date: 20250911
  Transmission Date: 20251020
  Serious: Yes (Death, Hospitalization, Other)
  Sender: AMGEN
  Company Number: IN-AMGEN-INDSP2025176557

PATIENT

DRUGS (3)
  1. ROMIPLOSTIM [Suspect]
     Active Substance: ROMIPLOSTIM
     Indication: Autologous haematopoietic stem cell transplant
     Route: 065
  2. FILGRASTIM [Suspect]
     Active Substance: FILGRASTIM
     Indication: Autologous haematopoietic stem cell transplant
     Route: 065
  3. IRON [Suspect]
     Active Substance: IRON
     Indication: Autologous haematopoietic stem cell transplant
     Route: 051

REACTIONS (7)
  - Death [Fatal]
  - Unevaluable event [Unknown]
  - Lymphoma [Unknown]
  - Paraproteinaemia [Unknown]
  - Diarrhoea [Unknown]
  - Drug effective for unapproved indication [Unknown]
  - Off label use [Unknown]
